FAERS Safety Report 6262484-6 (Version None)
Quarter: 2009Q3

REPORT INFORMATION
  Report Type: 
  Country: None (occurrence: None)
  Receive Date: 20090709
  Receipt Date: 20090625
  Transmission Date: 20100115
  Serious: Yes (Other)
  Sender: FDA-Public Use
  Company Number: GB-MYLANLABS-2009S1011413

PATIENT
  Age: 35 Year
  Sex: Male

DRUGS (2)
  1. ONDANSETRON [Suspect]
     Indication: DRUG USE FOR UNKNOWN INDICATION
     Route: 042
  2. ONDANSETRON [Suspect]
     Route: 042

REACTIONS (2)
  - HEPATOCELLULAR INJURY [None]
  - JAUNDICE [None]
